FAERS Safety Report 5191931-6 (Version None)
Quarter: 2006Q4

REPORT INFORMATION
  Report Type: 
  Country: None (occurrence: None)
  Receive Date: 20061219
  Receipt Date: 20061212
  Transmission Date: 20070319
  Serious: Yes (Hospitalization, Other)
  Sender: FDA-Public Use
  Company Number: ITWYE825513DEC06

PATIENT
  Age: 58 Year
  Sex: Male

DRUGS (2)
  1. PIPERACILLIN AND TAZOBACTAM [Suspect]
     Indication: FEBRILE BONE MARROW APLASIA
     Dates: start: 20061027, end: 20061031
  2. NOVALGINA (METAMIZOLE SODIUM) [Concomitant]

REACTIONS (1)
  - VASCULITIC RASH [None]
